FAERS Safety Report 20278728 (Version 2)
Quarter: 2022Q1

REPORT INFORMATION
  Report Type: Other
  Country: AR (occurrence: None)
  Receive Date: 20220103
  Receipt Date: 20220131
  Transmission Date: 20220423
  Serious: Yes (Hospitalization, Disabling)
  Sender: FDA-Public Use
  Company Number: AR-ROCHE-2987387

PATIENT
  Age: 47 Year
  Sex: Male
  Weight: 80 kg

DRUGS (4)
  1. OCREVUS [Suspect]
     Active Substance: OCRELIZUMAB
     Indication: Primary progressive multiple sclerosis
     Dosage: FREQUENCY WAS NOT REPORTED
     Route: 042
     Dates: start: 20210521
  2. DIPHENHYDRAMINE [Concomitant]
     Active Substance: DIPHENHYDRAMINE
     Indication: Premedication
     Dosage: 30 MINUTES BEFORE INFUSION
     Route: 042
  3. ACETAMINOPHEN [Concomitant]
     Active Substance: ACETAMINOPHEN
  4. HYDROCORTISONE [Concomitant]
     Active Substance: HYDROCORTISONE

REACTIONS (11)
  - Muscle spasticity [Unknown]
  - Mobility decreased [Unknown]
  - Muscular weakness [Unknown]
  - Pain [Unknown]
  - Bladder dysfunction [Unknown]
  - Gastrointestinal hypermotility [Unknown]
  - Muscle spasticity [Unknown]
  - Infection [Unknown]
  - Lymphocyte count increased [Unknown]
  - Depression [Recovering/Resolving]
  - Urinary tract infection [Recovering/Resolving]

NARRATIVE: CASE EVENT DATE: 20211101
